FAERS Safety Report 6214875-7 (Version None)
Quarter: 2009Q2

REPORT INFORMATION
  Report Type: 
  Country: None (occurrence: None)
  Receive Date: 20090604
  Receipt Date: 20090528
  Transmission Date: 20091009
  Serious: Yes (Hospitalization)
  Sender: FDA-Public Use
  Company Number: US-PFIZER INC-2009212777

PATIENT
  Sex: Female
  Weight: 61.224 kg

DRUGS (5)
  1. AMLODIPINE BESILATE, ATORVASTATIN CALCIUM [Suspect]
     Indication: HYPERTENSION
     Dosage: 2.5 MG/20 MG, 1X/DAY
     Route: 048
     Dates: start: 20070124
  2. LABETALOL [Concomitant]
     Dosage: UNK
     Dates: start: 20051230
  3. EFFEXOR [Concomitant]
     Dosage: UNK
  4. HECTOROL [Concomitant]
     Dosage: UNK
     Dates: start: 20070116
  5. ACETYLSALICYLIC ACID [Concomitant]
     Dosage: UNK
     Dates: start: 20051230

REACTIONS (1)
  - CONTUSION [None]
